FAERS Safety Report 4754794-6 (Version None)
Quarter: 2005Q3

REPORT INFORMATION
  Report Type: 
  Country: None (occurrence: None)
  Receive Date: 20050826
  Receipt Date: 20050826
  Transmission Date: 20060218
  Serious: Yes (Hospitalization, Other)
  Sender: FDA-Public Use
  Company Number: None

PATIENT
  Sex: Male
  Weight: 105 kg

DRUGS (3)
  1. ETOPOSIDE [Suspect]
     Indication: SMALL CELL LUNG CANCER STAGE UNSPECIFIED
     Dosage: SEE IMAGE
     Route: 042
     Dates: start: 20050810, end: 20050810
  2. CISPLATIN [Suspect]
     Dosage: SEE IMAGE
     Dates: start: 20050810, end: 20050810
  3. MANNITOL [Suspect]
     Dosage: SEE IMAGE
     Route: 042
     Dates: start: 20050810

REACTIONS (6)
  - CHILLS [None]
  - DEHYDRATION [None]
  - DYSPHAGIA [None]
  - ODYNOPHAGIA [None]
  - OESOPHAGITIS [None]
  - RENAL FAILURE [None]
